FAERS Safety Report 13401631 (Version 4)
Quarter: 2024Q1

REPORT INFORMATION
  Report Type: Other
  Country: RO (occurrence: RO)
  Receive Date: 20170404
  Receipt Date: 20240130
  Transmission Date: 20240410
  Serious: Yes (Death)
  Sender: FDA-Public Use
  Company Number: RO-TOLMAR, INC.-2017RO004000

PATIENT
  Age: 77 Year
  Sex: Male
  Weight: 183 kg

DRUGS (5)
  1. ELIGARD [Suspect]
     Active Substance: LEUPROLIDE ACETATE
     Indication: Prostate cancer
     Dosage: 45 MG, 6 MONTHS DOSE
     Route: 058
     Dates: start: 20150506
  2. ELIGARD [Suspect]
     Active Substance: LEUPROLIDE ACETATE
     Dosage: 45 MG, UNK
     Route: 058
     Dates: start: 20151108
  3. ZOLADEX                            /00732101/ [Concomitant]
     Indication: Product used for unknown indication
     Dosage: UNK
     Dates: start: 20131205, end: 20150202
  4. ZOMETA [Concomitant]
     Active Substance: ZOLEDRONIC ACID
     Indication: Product used for unknown indication
     Dosage: UNK
     Dates: start: 20150219
  5. TAXOTERE [Concomitant]
     Active Substance: DOCETAXEL
     Indication: Product used for unknown indication
     Dosage: UNK
     Dates: start: 20150319

REACTIONS (2)
  - Death [Fatal]
  - Neuroendocrine tumour [Fatal]
